FAERS Safety Report 12781392 (Version 1)
Quarter: 2016Q3

REPORT INFORMATION
  Report Type: Spontaneous
  Country: BR (occurrence: BR)
  Receive Date: 20160926
  Receipt Date: 20160926
  Transmission Date: 20161109
  Serious: Yes (Other)
  Sender: FDA-Public Use
  Company Number: BR-PFIZER INC-2016442334

PATIENT
  Age: 74 Year
  Sex: Female
  Weight: 65 kg

DRUGS (5)
  1. ENALAPRIL [Concomitant]
     Active Substance: ENALAPRIL
     Indication: HYPERTENSION
     Dosage: ONE TABLET BY THE MORNING
     Route: 048
  2. XALATAN [Suspect]
     Active Substance: LATANOPROST
     Indication: INTRAOCULAR PRESSURE TEST
     Dosage: ONE DROP IN THE RIGHT EYE AT NIGHT
     Route: 047
  3. BRIMONIDINE TARTRATE. [Concomitant]
     Active Substance: BRIMONIDINE TARTRATE
     Indication: INTRAOCULAR PRESSURE TEST
     Dosage: ONE DROP AT NIGHT AND ONE DROP IN THE MORNING IN THE RIGHT EYE
     Route: 047
     Dates: start: 2015
  4. PURAN [Concomitant]
     Active Substance: LEVOTHYROXINE SODIUM
     Indication: THYROID DISORDER
     Dosage: ONE TABLET OF 75MG BY THE MORNING, FASTING
     Route: 048
  5. TIMOLOL MALEATE. [Concomitant]
     Active Substance: TIMOLOL MALEATE
     Indication: INTRAOCULAR PRESSURE TEST
     Dosage: ONE DROP AT NIGHT AND ONE DROP IN THE MORNING IN THE RIGHT EYE
     Route: 047

REACTIONS (3)
  - Visual acuity reduced [Unknown]
  - Blindness unilateral [Unknown]
  - Glaucoma [Unknown]
